FAERS Safety Report 11043690 (Version 1)
Quarter: 2015Q2

REPORT INFORMATION
  Report Type: Spontaneous
  Country: US (occurrence: None)
  Receive Date: 20150416
  Receipt Date: 20150416
  Transmission Date: 20150821
  Serious: Yes (Hospitalization)
  Sender: FDA-Public Use
  Company Number: None

PATIENT
  Age: 60 Year
  Sex: Male

DRUGS (1)
  1. EXJADE [Suspect]
     Active Substance: DEFERASIROX
     Indication: IRON OVERLOAD
     Route: 048
     Dates: start: 201409, end: 20150403

REACTIONS (4)
  - Pneumonia [None]
  - Drug dose omission [None]
  - Leukaemia [None]
  - Hepatic failure [None]

NARRATIVE: CASE EVENT DATE: 20150403
